FAERS Safety Report 13561840 (Version 2)
Quarter: 2018Q3

REPORT INFORMATION
  Report Type: Spontaneous
  Country: TR (occurrence: TR)
  Receive Date: 20170518
  Receipt Date: 20180905
  Transmission Date: 20181010
  Serious: Yes (Other)
  Sender: FDA-Public Use
  Company Number: TR-GILEAD-2017-0272955

PATIENT
  Age: 71 Year
  Sex: Female

DRUGS (1)
  1. HARVONI [Suspect]
     Active Substance: LEDIPASVIR\SOFOSBUVIR
     Indication: CHRONIC HEPATITIS C
     Dosage: UNK
     Route: 065

REACTIONS (5)
  - Meningitis [Unknown]
  - Drug dose omission [Unknown]
  - Intentional product misuse [Unknown]
  - Incorrect drug administration duration [Recovered/Resolved]
  - Upper respiratory tract infection [Unknown]
